FAERS Safety Report 5843218-3 (Version None)
Quarter: 2008Q3

REPORT INFORMATION
  Report Type: 
  Country: None (occurrence: None)
  Receive Date: 20080813
  Receipt Date: 20080805
  Transmission Date: 20090109
  Serious: Yes (Hospitalization, Other)
  Sender: FDA-Public Use
  Company Number: PHHY2008JP17333

PATIENT
  Sex: Female
  Weight: 51 kg

DRUGS (15)
  1. GLEEVEC [Suspect]
     Indication: GASTROINTESTINAL STROMAL TUMOUR
     Dosage: 400 MG/DAY
     Route: 048
     Dates: start: 20040622, end: 20040905
  2. GLEEVEC [Suspect]
     Dosage: 300 MG/DAY
     Route: 048
     Dates: start: 20040906, end: 20040915
  3. GLEEVEC [Suspect]
     Dosage: 400 MG/ DAY
     Route: 048
     Dates: start: 20040916, end: 20041013
  4. GLEEVEC [Suspect]
     Dosage: 300 MG/DAY
     Route: 048
     Dates: start: 20041014, end: 20041129
  5. GLEEVEC [Suspect]
     Dosage: 200 MG/DAY
     Route: 048
     Dates: start: 20041207, end: 20041220
  6. GLEEVEC [Suspect]
     Dosage: 300 MG/DAY
     Route: 048
     Dates: start: 20041221, end: 20050909
  7. GLEEVEC [Suspect]
     Dosage: 300 MG/DAY
     Route: 048
     Dates: start: 20050915, end: 20051221
  8. GLEEVEC [Suspect]
     Dosage: 300 MG/DAY
     Route: 048
     Dates: start: 20060720, end: 20060803
  9. GLEEVEC [Suspect]
     Dosage: 300 MG/DAY
     Route: 048
     Dates: start: 20060807, end: 20060830
  10. GLEEVEC [Suspect]
     Dosage: 300 MG/DAY
     Route: 048
     Dates: start: 20060907, end: 20061115
  11. GLEEVEC [Suspect]
     Dosage: 400 MG/DAY
     Route: 048
     Dates: start: 20061116, end: 20070207
  12. GLEEVEC [Suspect]
     Dosage: 300 MG/DAY
     Route: 048
     Dates: start: 20070328, end: 20080301
  13. GLEEVEC [Suspect]
     Dosage: 300 MG/DAY
     Route: 048
     Dates: start: 20080611
  14. ZYRTEC [Concomitant]
     Dosage: 10 MG
     Route: 048
     Dates: start: 20040913, end: 20041205
  15. CELTECT [Concomitant]
     Dosage: 60 MG
     Route: 048
     Dates: start: 20041206

REACTIONS (17)
  - ABDOMINAL MASS [None]
  - ABDOMINAL PAIN UPPER [None]
  - ALOPECIA [None]
  - ANOREXIA [None]
  - COLECTOMY [None]
  - EATING DISORDER [None]
  - FACE OEDEMA [None]
  - GENERALISED OEDEMA [None]
  - LOCALISED OEDEMA [None]
  - MALAISE [None]
  - NEOPLASM RECURRENCE [None]
  - OEDEMA [None]
  - PRURITUS [None]
  - RASH [None]
  - SCHIZOPHRENIA [None]
  - TUMOUR EXCISION [None]
  - VOMITING [None]
